FAERS Safety Report 9027886 (Version 3)
Quarter: 2013Q3

REPORT INFORMATION
  Report Type: Spontaneous
  Country: US (occurrence: US)
  Receive Date: 20130124
  Receipt Date: 20130702
  Transmission Date: 20140515
  Serious: Yes (Hospitalization, Other)
  Sender: FDA-Public Use
  Company Number: US-009507513-1301USA008767

PATIENT
  Age: 60 Year
  Sex: Male

DRUGS (3)
  1. PEG-INTRON [Suspect]
     Indication: HEPATITIS C
     Dosage: UNK
     Route: 058
     Dates: start: 20130102, end: 20130420
  2. REBETOL [Suspect]
     Indication: HEPATITIS C
     Dosage: UNK
     Route: 048
     Dates: start: 20130102, end: 20130420
  3. VICTRELIS [Suspect]
     Indication: HEPATITIS C
     Dosage: UNK
     Dates: start: 20130224, end: 20130420

REACTIONS (9)
  - Pyrexia [Unknown]
  - Headache [Unknown]
  - Somnolence [Unknown]
  - Pyrexia [Unknown]
  - White blood cell count decreased [Unknown]
  - Headache [Unknown]
  - Sinusitis [Unknown]
  - Leukopenia [Unknown]
  - White blood cell count decreased [Unknown]
